FAERS Safety Report 4912294-4 (Version None)
Quarter: 2006Q1

REPORT INFORMATION
  Report Type: 
  Country: None (occurrence: None)
  Receive Date: 20060213
  Receipt Date: 20060202
  Transmission Date: 20060701
  Serious: Yes (Hospitalization)
  Sender: FDA-Public Use
  Company Number: CIP06000239

PATIENT
  Age: 66 Year
  Sex: Female

DRUGS (3)
  1. OPTINATE (RISEDRONATE SODIUM)TABLET, 35MG [Suspect]
     Indication: OSTEOPOROSIS
     Dosage: 35 MG ONCE WEEKLY, ORAL
     Route: 048
     Dates: start: 20021113
  2. FOSAMAX [Suspect]
     Indication: OSTEOPOROSIS
     Dosage: 70 MG ONCE WEEKLY, ORAL
     Route: 048
     Dates: start: 20021004, end: 20021113
  3. CALCICHEW-D3 (COLECALCIFEROL, CALCIUM CARBONATE) TABLET [Concomitant]

REACTIONS (5)
  - DYSPEPSIA [None]
  - EROSIVE OESOPHAGITIS [None]
  - HIATUS HERNIA [None]
  - NAUSEA [None]
  - OESOPHAGEAL STENOSIS [None]
